FAERS Safety Report 7743012-2 (Version None)
Quarter: 2011Q3

REPORT INFORMATION
  Report Type: 
  Country: None (occurrence: None)
  Receive Date: 20110912
  Receipt Date: 20110908
  Transmission Date: 20111222
  Serious: Yes (Life-Threatening, Hospitalization, Disabling)
  Sender: FDA-Public Use
  Company Number: AU-ROCHE-765998

PATIENT
  Sex: Female
  Weight: 109 kg

DRUGS (17)
  1. OXALIPLATIN [Suspect]
     Indication: RECTAL CANCER
     Dosage: LAST DOSE PRIOR TO SAE ON 21MAR 2011 (50 MG/M2 ON DAY1, 8, 15, 21 AND 29).
     Route: 042
     Dates: start: 20110221, end: 20110810
  2. ENOXAPARIN [Concomitant]
     Indication: ATRIAL FIBRILLATION
     Route: 058
     Dates: start: 20110626
  3. COLECALCIFEROL [Concomitant]
     Indication: VITAMIN SUPPLEMENTATION
     Dosage: SCHEDULE: MANE
     Route: 048
  4. SALMETEROL [Concomitant]
     Indication: ASTHMA
     Dosage: DRUG: SALMETROL 25 MCG, DOSE2 PUFFS, FREQ: MANE
     Route: 055
  5. PREDNISOLONE [Concomitant]
     Indication: RHEUMATOID ARTHRITIS
     Dosage: SCHEDULE: NOCTE
     Route: 048
  6. PANTOPRAZOLE [Concomitant]
     Indication: ILL-DEFINED DISORDER
     Dosage: SCHEDULE: NOCTE
     Route: 048
  7. FOLIC ACID [Concomitant]
     Indication: ANAEMIA
     Dosage: SCHEDULE: MANE
     Route: 048
  8. ACETAMINOPHEN [Concomitant]
     Dosage: SCHEDULE: PRN UPTO 3 TIMES A DAY, SLOW RELEASE
     Route: 048
  9. CAPECITABINE [Suspect]
     Indication: RECTAL CANCER
     Dosage: LAST DATE PRIOR TO SAE: 26 MARCH 2011 250 MG. (825 MG/M2 BID D1-33 W/O WEEKENDS AND OPTIONAL BOOST),
     Route: 048
     Dates: start: 20110221, end: 20110810
  10. FERROUS SULFATE TAB [Concomitant]
     Dosage: SCHEDULE: MANE
     Route: 048
  11. METOCLOPRAMIDE [Concomitant]
     Indication: NAUSEA
     Dosage: FREQ: PRN UPTO 3 TIMES A DAY.
     Route: 048
  12. DICLOFENAC SODIUM [Concomitant]
     Indication: RHEUMATOID ARTHRITIS
     Dosage: SCHEDULE: MANE
     Route: 048
  13. FLUTICASONE PROPIONATE [Concomitant]
     Indication: ASTHMA
     Dosage: DRUG: FLUTICASONE 250MCG, DOSE 2 PUFFS, FREQ: MANE
     Route: 055
  14. METOPROLOL SUCCINATE [Concomitant]
     Indication: ATRIAL FIBRILLATION
     Route: 048
     Dates: start: 20110406
  15. VERAPAMIL [Concomitant]
     Indication: HYPERTENSION
     Dosage: FREQ: NOCTE
     Route: 048
     Dates: end: 20110406
  16. METHOTREXATE [Concomitant]
     Indication: RHEUMATOID ARTHRITIS
     Dosage: SCHEDULE: WEEKLY
     Route: 048
  17. OLMESARTAN MEDOXOMIL [Concomitant]
     Dosage: SCHEDULE: MANE
     Route: 048

REACTIONS (12)
  - HYPOALBUMINAEMIA [None]
  - PYREXIA [None]
  - HYPOKALAEMIA [None]
  - ATRIAL FIBRILLATION [None]
  - DECREASED APPETITE [None]
  - ANASTOMOTIC FISTULA [None]
  - NAUSEA [None]
  - VENTRICULAR TACHYCARDIA [None]
  - DIARRHOEA [None]
  - ANASTOMOTIC LEAK [None]
  - URINARY TRACT INFECTION [None]
  - DEHYDRATION [None]
